FAERS Safety Report 20083759 (Version 4)
Quarter: 2022Q2

REPORT INFORMATION
  Report Type: Spontaneous
  Country: PT (occurrence: PT)
  Receive Date: 20211118
  Receipt Date: 20220415
  Transmission Date: 20220721
  Serious: Yes (Life-Threatening, Hospitalization, Other)
  Sender: FDA-Public Use
  Company Number: PT-AUROBINDO-AUR-APL-2021-045639

PATIENT
  Age: 54 Year
  Sex: Male

DRUGS (3)
  1. METOCLOPRAMIDE [Suspect]
     Active Substance: METOCLOPRAMIDE
     Indication: Product used for unknown indication
     Dosage: UNK
     Route: 048
  2. OLANZAPINE [Suspect]
     Active Substance: OLANZAPINE
     Indication: Product used for unknown indication
     Dosage: UNK
     Route: 048
  3. PROPRANOLOL HYDROCHLORIDE [Suspect]
     Active Substance: PROPRANOLOL HYDROCHLORIDE
     Indication: Product used for unknown indication
     Dosage: UNK
     Route: 065

REACTIONS (19)
  - Neuroleptic malignant syndrome [Recovered/Resolved]
  - Hypertension [Recovered/Resolved]
  - Pyrexia [Recovered/Resolved]
  - Tachycardia [Recovered/Resolved]
  - Muscle rigidity [Recovered/Resolved]
  - Psychomotor hyperactivity [Recovered/Resolved]
  - Hyponatraemia [Recovered/Resolved]
  - Hyperthermia [Recovered/Resolved]
  - Altered state of consciousness [Recovered/Resolved]
  - Leukocytosis [Recovered/Resolved]
  - Generalised tonic-clonic seizure [Recovered/Resolved]
  - Poisoning deliberate [Recovered/Resolved]
  - Rhabdomyolysis [Recovered/Resolved]
  - Intentional product misuse [Unknown]
  - Pulmonary embolism [Recovered/Resolved]
  - Toxicity to various agents [Recovered/Resolved]
  - Speech disorder [Recovered/Resolved]
  - Drug abuse [Recovered/Resolved]
  - Intentional overdose [Recovered/Resolved]
